FAERS Safety Report 7060860-5 (Version None)
Quarter: 2010Q4

REPORT INFORMATION
  Report Type: 
  Country: None (occurrence: None)
  Receive Date: 20101025
  Receipt Date: 20101015
  Transmission Date: 20110411
  Serious: Yes (Other)
  Sender: FDA-Public Use
  Company Number: ZA-ABBOTT-10P-143-0678526-00

PATIENT
  Sex: Female

DRUGS (9)
  1. HUMIRA [Suspect]
     Indication: ANKYLOSING SPONDYLITIS
     Route: 058
     Dates: start: 20100101
  2. ZOPICLONE [Concomitant]
     Indication: INSOMNIA
     Dosage: ONE AT NIGHT
     Route: 048
  3. TOPAMAX [Concomitant]
     Indication: AFFECTIVE DISORDER
     Route: 048
  4. TREPILINE [Concomitant]
     Indication: INSOMNIA
     Route: 048
  5. TREPILINE [Concomitant]
     Indication: PAIN
  6. LAMICTIN [Concomitant]
     Indication: AFFECTIVE DISORDER
     Route: 048
  7. CYMBALTA [Concomitant]
     Indication: DEPRESSION
     Route: 048
  8. FEMODENE [Concomitant]
     Indication: ORAL CONTRACEPTION
     Route: 048
  9. LENTOGESIC [Concomitant]
     Indication: ANKYLOSING SPONDYLITIS
     Route: 048

REACTIONS (3)
  - LARYNGITIS [None]
  - PHARYNGITIS [None]
  - PRODUCTIVE COUGH [None]
